FAERS Safety Report 5196208-0 (Version None)
Quarter: 2006Q4

REPORT INFORMATION
  Report Type: 
  Country: None (occurrence: None)
  Receive Date: 20061222
  Receipt Date: 20061214
  Transmission Date: 20070319
  Serious: Yes (Death)
  Sender: FDA-Public Use
  Company Number: 2006P1000572

PATIENT
  Age: 49 Year
  Sex: Male

DRUGS (2)
  1. BUSULFAN (BUSULFAN) [Suspect]
     Indication: STEM CELL TRANSPLANT
     Dosage: 3.2 MG/KG;QID;IV
     Route: 042
     Dates: start: 20061012, end: 20061015
  2. CYCLOSPORINE [Suspect]
     Indication: STEM CELL TRANSPLANT

REACTIONS (4)
  - DIARRHOEA [None]
  - DUODENAL ULCER [None]
  - GRAFT VERSUS HOST DISEASE [None]
  - RENAL IMPAIRMENT [None]
